FAERS Safety Report 17335281 (Version 1)
Quarter: 2020Q1

REPORT INFORMATION
  Report Type: Spontaneous
  Country: CA (occurrence: CA)
  Receive Date: 20200128
  Receipt Date: 20200128
  Transmission Date: 20200409
  Serious: Yes (Other)
  Sender: FDA-Public Use
  Company Number: CA-SA-2020SA017636

PATIENT
  Sex: Female

DRUGS (4)
  1. METHOTREXATE. [Suspect]
     Active Substance: METHOTREXATE
     Indication: ARTHRITIS
     Dosage: 25 MG, QW
     Route: 058
     Dates: start: 2007, end: 2017
  2. CHLOROQUINE. [Suspect]
     Active Substance: CHLOROQUINE
     Dosage: UNK
     Route: 065
     Dates: start: 1980, end: 2017
  3. LEFLUNOMIDE. [Suspect]
     Active Substance: LEFLUNOMIDE
     Dosage: 20 MG, QD
     Dates: start: 2007, end: 2017
  4. SULFASALAZINE. [Suspect]
     Active Substance: SULFASALAZINE
     Indication: ARTHRITIS
     Dosage: UNK
     Route: 065
     Dates: start: 2007, end: 2017

REACTIONS (2)
  - Therapeutic product effect incomplete [Unknown]
  - Interstitial lung disease [Unknown]
